FAERS Safety Report 9300829 (Version 1)
Quarter: 2013Q2

REPORT INFORMATION
  Report Type: Spontaneous
  Country: IT (occurrence: IT)
  Receive Date: 20130521
  Receipt Date: 20130521
  Transmission Date: 20140414
  Serious: Yes (Other)
  Sender: FDA-Public Use
  Company Number: PHHY2013IT049501

PATIENT
  Age: 59 Year
  Sex: Female

DRUGS (3)
  1. QUETIAPINE [Suspect]
     Indication: INSOMNIA
     Dosage: 25 MG, AT BED TIME
  2. QUETIAPINE [Suspect]
     Dosage: 50 MG, AT BED TIME
  3. QUETIAPINE [Suspect]
     Dosage: 25 MG, UNK

REACTIONS (8)
  - Mouth haemorrhage [Unknown]
  - Somnambulism [Recovered/Resolved]
  - Dissociation [Unknown]
  - Confusional state [Unknown]
  - Face injury [Unknown]
  - Joint injury [Unknown]
  - Akathisia [Not Recovered/Not Resolved]
  - Irregular sleep phase [Unknown]
